FAERS Safety Report 19872963 (Version 2)
Quarter: 2021Q4

REPORT INFORMATION
  Report Type: Spontaneous
  Country: US (occurrence: None)
  Receive Date: 20210922
  Receipt Date: 20211109
  Transmission Date: 20220303
  Serious: No
  Sender: FDA-Public Use
  Company Number: 2021A724846

PATIENT
  Age: 23249 Day

DRUGS (1)
  1. BYDUREON BCISE [Suspect]
     Active Substance: EXENATIDE
     Route: 058

REACTIONS (3)
  - Injection site pain [Unknown]
  - Injection site nodule [Unknown]
  - Device defective [Unknown]

NARRATIVE: CASE EVENT DATE: 20210912
